FAERS Safety Report 8200492-6 (Version None)
Quarter: 2012Q1

REPORT INFORMATION
  Report Type: 
  Country: None (occurrence: None)
  Receive Date: 20120308
  Receipt Date: 20120224
  Transmission Date: 20120608
  Serious: Yes (Hospitalization)
  Sender: FDA-Public Use
  Company Number: BR-GDP-12413072

PATIENT
  Sex: Female
  Weight: 45 kg

DRUGS (1)
  1. EPIDUO [Suspect]
     Indication: ACNE
     Dosage: 1 DF QD, TOPICAL
     Route: 061
     Dates: start: 20120208, end: 20120208

REACTIONS (4)
  - SKIN DISORDER [None]
  - SWELLING [None]
  - PAPULE [None]
  - ERYTHEMA [None]
